FAERS Safety Report 4703133-5 (Version None)
Quarter: 2005Q2

REPORT INFORMATION
  Report Type: 
  Country: None (occurrence: None)
  Receive Date: 20050629
  Receipt Date: 20050606
  Transmission Date: 20051028
  Serious: Yes (Other)
  Sender: FDA-Public Use
  Company Number: AU-GLAXOSMITHKLINE-B0384055A

PATIENT
  Age: 77 Year
  Sex: Male
  Weight: 84 kg

DRUGS (4)
  1. ROPINIROLE HCL [Suspect]
     Indication: DRUG USE FOR UNKNOWN INDICATION
     Dosage: .25MG AT NIGHT
     Route: 048
     Dates: start: 20050602, end: 20050603
  2. CARBIDOPA AND LEVODOPA [Concomitant]
     Indication: PARKINSONISM
     Route: 048
  3. MORPHINE SULFATE [Concomitant]
     Indication: PAIN
     Dosage: 10MG THREE TIMES PER DAY
     Route: 048
  4. PANAMAX [Concomitant]
     Indication: PAIN
     Dosage: 500MG FOUR TIMES PER DAY
     Route: 048

REACTIONS (5)
  - CONFUSIONAL STATE [None]
  - DYSKINESIA [None]
  - HALLUCINATION [None]
  - MENTAL DISORDER [None]
  - TREMOR [None]
